FAERS Safety Report 16559180 (Version 3)
Quarter: 2020Q2

REPORT INFORMATION
  Report Type: Spontaneous
  Country: CA (occurrence: CA)
  Receive Date: 20190711
  Receipt Date: 20200507
  Transmission Date: 20200713
  Serious: Yes (Hospitalization, Other)
  Sender: FDA-Public Use
  Company Number: CA-AUROBINDO-AUR-APL-2019-038887

PATIENT

DRUGS (12)
  1. BUPROPION. [Suspect]
     Active Substance: BUPROPION
     Indication: DEPRESSION
     Dosage: 350 MILLIGRAM
     Route: 065
  2. LEVOMEPROMAZINE MALEATE [Suspect]
     Active Substance: LEVOMEPROMAZINE MALEATE
     Indication: DEPRESSION
     Dosage: 25 MILLIGRAM
     Route: 065
  3. QUETIAPINE FILM-COATED TABLET [Suspect]
     Active Substance: QUETIAPINE
     Dosage: 200 MILLIGRAM
     Route: 065
  4. NORTRIPTYLINE HYDROCHLORIDE. [Suspect]
     Active Substance: NORTRIPTYLINE HYDROCHLORIDE
     Indication: DEPRESSION
     Dosage: 50 MILLIGRAM
     Route: 065
  5. METHOPRAZINE [Suspect]
     Active Substance: LEVOMEPROMAZINE MALEATE
     Indication: DEPRESSION
     Dosage: 25 MILLIGRAM
     Route: 065
  6. APO-LITHIUM CARBONATE [Suspect]
     Active Substance: LITHIUM CARBONATE
     Indication: DEPRESSION
     Dosage: 600 MILLIGRAM
     Route: 065
  7. VENLAFAXINE EXTENDED RELEASE CAPSULE [Suspect]
     Active Substance: VENLAFAXINE HYDROCHLORIDE
     Indication: DEPRESSION
     Dosage: 150 MILLIGRAM
     Route: 065
  8. QUETIAPINE. [Suspect]
     Active Substance: QUETIAPINE
     Indication: DEPRESSION
     Dosage: 300 MILLIGRAM
     Route: 065
  9. APO MIRTAZAPINE [Suspect]
     Active Substance: MIRTAZAPINE
     Indication: DEPRESSION
     Dosage: 45 MILLIGRAM
     Route: 065
  10. QUETIAPINE FILM-COATED TABLET [Suspect]
     Active Substance: QUETIAPINE
     Indication: DEPRESSION
     Dosage: 600 MILLIGRAM
     Route: 065
  11. APO LAMOTRIGINE [Suspect]
     Active Substance: LAMOTRIGINE
     Indication: DEPRESSION
     Dosage: 75 MILLIGRAM
     Route: 065
  12. APO-LITHIUM CARBONATE [Suspect]
     Active Substance: LITHIUM CARBONATE
     Indication: DEPRESSION
     Dosage: 1050 MILLIGRAM
     Route: 065

REACTIONS (15)
  - Depressed mood [Recovered/Resolved]
  - Insomnia [Recovered/Resolved]
  - Major depression [Recovered/Resolved]
  - Obsessive-compulsive disorder [Recovered/Resolved]
  - Emotional distress [Recovered/Resolved]
  - Suicide attempt [Recovered/Resolved]
  - Abulia [Recovered/Resolved]
  - Decreased interest [Recovered/Resolved]
  - Depression [Recovered/Resolved]
  - Sleep disorder [Recovered/Resolved]
  - Drug ineffective [Recovered/Resolved]
  - Drug intolerance [Recovered/Resolved]
  - Feelings of worthlessness [Recovered/Resolved]
  - Psychomotor hyperactivity [Recovered/Resolved]
  - Restless legs syndrome [Recovered/Resolved]
